FAERS Safety Report 8096036-2 (Version None)
Quarter: 2012Q1

REPORT INFORMATION
  Report Type: 
  Country: None (occurrence: None)
  Receive Date: 20120129
  Receipt Date: 20111227
  Transmission Date: 20120608
  Serious: Yes (Other)
  Sender: FDA-Public Use
  Company Number: US-ABBOTT-11P-163-0887137-00

PATIENT
  Sex: Male
  Weight: 83.99 kg

DRUGS (2)
  1. HUMIRA [Suspect]
     Indication: CROHN'S DISEASE
     Dosage: STARTED WITH LOADING DOSE
     Route: 058
     Dates: start: 20111001, end: 20111101
  2. HUMIRA [Suspect]
     Route: 058
     Dates: start: 20111201

REACTIONS (1)
  - ABSCESS [None]
